FAERS Safety Report 6640205-2 (Version None)
Quarter: 2010Q1

REPORT INFORMATION
  Report Type: 
  Country: None (occurrence: None)
  Receive Date: 20100315
  Receipt Date: 20100303
  Transmission Date: 20100710
  Serious: Yes (Hospitalization)
  Sender: FDA-Public Use
  Company Number: 008284

PATIENT
  Sex: Male

DRUGS (1)
  1. KEPPRA [Suspect]
     Dosage: (4 G, TAKEN IN THE PAST SEVERAL WEEKS)

REACTIONS (1)
  - STATUS EPILEPTICUS [None]
